FAERS Safety Report 4707370-5 (Version None)
Quarter: 2005Q3

REPORT INFORMATION
  Report Type: 
  Country: None (occurrence: None)
  Receive Date: 20050705
  Receipt Date: 20050617
  Transmission Date: 20060218
  Serious: Yes (Other)
  Sender: FDA-Public Use
  Company Number: C-05-0034

PATIENT
  Age: 77 Year
  Sex: Female
  Weight: 63.5036 kg

DRUGS (5)
  1. NYSTATIN [Suspect]
     Indication: ORAL CANDIDIASIS
     Dosage: TWICE DAILY ORALLY
     Route: 048
     Dates: start: 20050308
  2. ACEON [Concomitant]
  3. INDERAL [Concomitant]
  4. MECLIZINE [Concomitant]
  5. . [Concomitant]

REACTIONS (3)
  - ABDOMINAL PAIN [None]
  - DIARRHOEA [None]
  - NO THERAPEUTIC RESPONSE [None]
